FAERS Safety Report 21036601 (Version 1)
Quarter: 2022Q3

REPORT INFORMATION
  Report Type: Spontaneous
  Country: US (occurrence: US)
  Receive Date: 20220702
  Receipt Date: 20220702
  Transmission Date: 20221027
  Serious: Yes (Other)
  Sender: FDA-Public Use
  Company Number: US-UNITED THERAPEUTICS-UNT-2022-013947

PATIENT
  Age: 22 Year
  Sex: Female

DRUGS (4)
  1. REMODULIN [Suspect]
     Active Substance: TREPROSTINIL
     Indication: Heritable pulmonary arterial hypertension
     Dosage: 0.108 ?G/KG, CONTINUING
     Route: 058
  2. MACITENTAN [Suspect]
     Active Substance: MACITENTAN
     Indication: Heritable pulmonary arterial hypertension
     Dosage: UNK
     Route: 065
  3. IMATINIB [Suspect]
     Active Substance: IMATINIB
     Indication: Heritable pulmonary arterial hypertension
     Dosage: UNK
     Route: 065
  4. SILDENAFIL [Suspect]
     Active Substance: SILDENAFIL
     Indication: Heritable pulmonary arterial hypertension
     Dosage: 80 MG, TID
     Route: 065

REACTIONS (6)
  - Abortion induced [Recovered/Resolved]
  - Maternal exposure during pregnancy [Recovered/Resolved]
  - Brain natriuretic peptide increased [Recovering/Resolving]
  - Right ventricular dilatation [Recovering/Resolving]
  - Right ventricular dysfunction [Recovering/Resolving]
  - Walking distance test abnormal [Recovering/Resolving]
